FAERS Safety Report 12146074 (Version 2)
Quarter: 2016Q2

REPORT INFORMATION
  Report Type: Spontaneous
  Country: JP (occurrence: JP)
  Receive Date: 20160304
  Receipt Date: 20160412
  Transmission Date: 20160815
  Serious: Yes (Other)
  Sender: FDA-Public Use
  Company Number: JP-ASTELLAS-2016JP003027AA

PATIENT
  Age: 65 Year
  Sex: Male
  Weight: 60 kg

DRUGS (16)
  1. TACROLIMUS. [Interacting]
     Active Substance: TACROLIMUS
     Dosage: 0.04 MG, ONCE DAILY
     Route: 041
     Dates: start: 20160121, end: 201601
  2. VFEND [Interacting]
     Active Substance: VORICONAZOLE
     Route: 048
     Dates: start: 20151222, end: 20160112
  3. VFEND [Interacting]
     Active Substance: VORICONAZOLE
     Indication: INFECTION PROPHYLAXIS
     Route: 041
     Dates: start: 20151204, end: 201512
  4. PROGRAF [Interacting]
     Active Substance: TACROLIMUS\TACROLIMUS ANHYDROUS
     Dosage: 0.5 MG, TWICE DAILY
     Route: 048
     Dates: start: 20160110, end: 20160112
  5. METHOTREXATE [Concomitant]
     Active Substance: METHOTREXATE
     Route: 041
     Dates: start: 20151128, end: 20151128
  6. METHOTREXATE [Concomitant]
     Active Substance: METHOTREXATE
     Route: 041
     Dates: start: 20151201, end: 20151201
  7. URSO [Concomitant]
     Active Substance: URSODIOL
     Indication: PROPHYLAXIS
     Dosage: UNK UNK, UNKNOWN FREQ.
     Route: 048
     Dates: end: 20151204
  8. VFEND [Interacting]
     Active Substance: VORICONAZOLE
     Route: 041
     Dates: start: 201512, end: 20151221
  9. URSO [Concomitant]
     Active Substance: URSODIOL
     Dosage: UNK UNK, UNKNOWN FREQ.
     Route: 048
     Dates: start: 20151222
  10. VFEND [Interacting]
     Active Substance: VORICONAZOLE
     Indication: INFECTION PROPHYLAXIS
     Route: 048
     Dates: start: 20150624, end: 20151203
  11. AMLODIPINE [Concomitant]
     Active Substance: AMLODIPINE BESYLATE
     Indication: HYPERTENSION
     Route: 065
     Dates: start: 20151226, end: 20160101
  12. BUSULFAN. [Concomitant]
     Active Substance: BUSULFAN
     Indication: CORD BLOOD TRANSPLANT THERAPY
     Dosage: UNK UNK, UNKNOWN FREQ.
     Route: 065
     Dates: start: 2015
  13. TACROLIMUS. [Suspect]
     Active Substance: TACROLIMUS
     Indication: PROPHYLAXIS AGAINST GRAFT VERSUS HOST DISEASE
     Route: 041
     Dates: start: 20151124, end: 20160105
  14. PROGRAF [Interacting]
     Active Substance: TACROLIMUS\TACROLIMUS ANHYDROUS
     Indication: PROPHYLAXIS AGAINST GRAFT VERSUS HOST DISEASE
     Dosage: 0.7 MG, TWICE DAILY
     Route: 048
     Dates: start: 20160106, end: 20160109
  15. METHOTREXATE [Concomitant]
     Active Substance: METHOTREXATE
     Indication: PROPHYLAXIS AGAINST GRAFT VERSUS HOST DISEASE
     Route: 040
     Dates: start: 20151126, end: 20151126
  16. FLUDARABINE [Concomitant]
     Active Substance: FLUDARABINE PHOSPHATE
     Indication: CORD BLOOD TRANSPLANT THERAPY
     Dosage: UNK UNK, UNKNOWN FREQ.
     Route: 065
     Dates: start: 2015

REACTIONS (5)
  - White blood cell count increased [Recovering/Resolving]
  - Drug level increased [Recovering/Resolving]
  - Liver disorder [Recovered/Resolved]
  - Renal disorder [Recovered/Resolved]
  - Drug interaction [Unknown]

NARRATIVE: CASE EVENT DATE: 201512
